FAERS Safety Report 17555720 (Version 2)
Quarter: 2020Q2

REPORT INFORMATION
  Report Type: Spontaneous
  Country: DE (occurrence: DE)
  Receive Date: 20200318
  Receipt Date: 20200504
  Transmission Date: 20200713
  Serious: Yes (Other)
  Sender: FDA-Public Use
  Company Number: DE-ASTRAZENECA-2020SE36054

PATIENT
  Age: 23953 Day
  Sex: Male
  Weight: 106 kg

DRUGS (5)
  1. FORXIGA [Suspect]
     Active Substance: DAPAGLIFLOZIN
     Indication: TYPE 1 DIABETES MELLITUS
     Route: 048
     Dates: start: 20200305, end: 20200307
  2. INSULIN [Concomitant]
     Active Substance: INSULIN NOS
  3. NOVORAPID [Concomitant]
     Active Substance: INSULIN ASPART
     Indication: TYPE 1 DIABETES MELLITUS
     Dates: end: 1990
  4. FORXIGA [Suspect]
     Active Substance: DAPAGLIFLOZIN
     Indication: CORONARY ARTERY DISEASE
     Route: 048
     Dates: start: 20200305, end: 20200307
  5. FORXIGA [Suspect]
     Active Substance: DAPAGLIFLOZIN
     Indication: PROPHYLAXIS
     Route: 048
     Dates: start: 20200305, end: 20200307

REACTIONS (5)
  - Blood glucose increased [Unknown]
  - Ketoacidosis [Recovered/Resolved]
  - Nausea [Recovered/Resolved]
  - Vomiting [Recovered/Resolved]
  - Abdominal pain [Recovered/Resolved]

NARRATIVE: CASE EVENT DATE: 20200307
